FAERS Safety Report 11137903 (Version 1)
Quarter: 2015Q2

REPORT INFORMATION
  Report Type: Spontaneous
  Country: US (occurrence: US)
  Receive Date: 20150526
  Receipt Date: 20150526
  Transmission Date: 20150821
  Serious: No
  Sender: FDA-Public Use
  Company Number: US-009507513-1505USA002848

PATIENT
  Age: 62 Year
  Sex: Female

DRUGS (3)
  1. PRINIVIL [Suspect]
     Active Substance: LISINOPRIL
     Dosage: 20 MG, UNK
     Route: 048
  2. PRINIVIL [Suspect]
     Active Substance: LISINOPRIL
     Dosage: 10 MG, UNK
     Route: 048
  3. PREMARIN [Concomitant]
     Active Substance: ESTROGENS, CONJUGATED
     Dosage: 0.625 MG

REACTIONS (11)
  - Depressed mood [Unknown]
  - Decreased appetite [Unknown]
  - Asocial behaviour [Unknown]
  - Tearfulness [Unknown]
  - Hot flush [Unknown]
  - Blood pressure increased [Unknown]
  - Mood altered [Unknown]
  - Night sweats [Unknown]
  - Withdrawal syndrome [Unknown]
  - Weight increased [Unknown]
  - Insomnia [Unknown]
